FAERS Safety Report 8428627-0 (Version None)
Quarter: 2012Q2

REPORT INFORMATION
  Report Type: 
  Country: None (occurrence: None)
  Receive Date: 20120606
  Receipt Date: 20120606
  Transmission Date: 20120825
  Serious: Yes (Hospitalization)
  Sender: FDA-Public Use
  Company Number: None

PATIENT
  Sex: Male
  Weight: 85.5484 kg

DRUGS (10)
  1. OXALIPLATIN [Suspect]
     Indication: OESOPHAGEAL CARCINOMA
     Dosage: 173 MG 041
     Dates: start: 20120530
  2. AVASTIN [Concomitant]
  3. LEUCOVORIN CALCIUM [Concomitant]
  4. RAMIPRIL [Concomitant]
  5. IBUPROFEN [Concomitant]
  6. FENTANYL-100 [Concomitant]
  7. SANCUSO PATCH [Concomitant]
  8. OMEPRAZOLE [Concomitant]
  9. OXYCODONE HCL [Concomitant]
  10. 5-FLUOROURACIL [Suspect]
     Indication: OESOPHAGEAL CARCINOMA
     Dosage: 816 MG 040, 4896 MG 041
     Dates: start: 20120530, end: 20120601

REACTIONS (5)
  - OESOPHAGEAL OBSTRUCTION [None]
  - DEVICE DISLOCATION [None]
  - VOMITING [None]
  - NAUSEA [None]
  - OESOPHAGEAL PAIN [None]
